FAERS Safety Report 9660643 (Version 1)
Quarter: 2013Q4

REPORT INFORMATION
  Report Type: Spontaneous
  Country: DE (occurrence: DE)
  Receive Date: 20131031
  Receipt Date: 20131031
  Transmission Date: 20140711
  Serious: Yes (Death, Hospitalization)
  Sender: FDA-Public Use
  Company Number: DE-AMGEN-DEUSP2013076512

PATIENT
  Age: 59 Year
  Sex: Male
  Weight: 67 kg

DRUGS (2)
  1. ENBREL [Suspect]
     Indication: ANKYLOSING SPONDYLITIS
     Dosage: 50 MG, WEEKLY
     Route: 058
     Dates: start: 2004, end: 201307
  2. INDOMETACIN [Concomitant]
     Dosage: 50 MG, AS NEEDED
     Route: 048

REACTIONS (3)
  - Cerebrovascular accident [Fatal]
  - Multi-organ failure [Fatal]
  - Bronchopneumonia [Fatal]
